FAERS Safety Report 15333867 (Version 4)
Quarter: 2018Q4

REPORT INFORMATION
  Report Type: Report from Study
  Country: US (occurrence: US)
  Receive Date: 20180830
  Receipt Date: 20181129
  Transmission Date: 20190204
  Serious: Yes (Hospitalization)
  Sender: FDA-Public Use
  Company Number: US-TESARO, INC-US-2018TSO03856

PATIENT
  Age: 61 Year
  Sex: Female

DRUGS (1)
  1. ZEJULA [Suspect]
     Active Substance: NIRAPARIB
     Indication: MALIGNANT PERITONEAL NEOPLASM
     Dosage: 200 MG, QPM WITHOUT FOOD, 2 CAPSULES BY MOUTH NIGHTLY
     Route: 048
     Dates: start: 20180719

REACTIONS (10)
  - Red blood cell count decreased [Unknown]
  - Anaemia [Unknown]
  - White blood cell count increased [Not Recovered/Not Resolved]
  - Unevaluable event [Unknown]
  - Nausea [Not Recovered/Not Resolved]
  - Fatigue [Not Recovered/Not Resolved]
  - Bone marrow disorder [Not Recovered/Not Resolved]
  - Gait disturbance [Unknown]
  - Insomnia [Recovering/Resolving]
  - Intentional underdose [Not Recovered/Not Resolved]

NARRATIVE: CASE EVENT DATE: 20180719
